FAERS Safety Report 18642067 (Version 1)
Quarter: 2020Q4

REPORT INFORMATION
  Report Type: Spontaneous
  Country: GB (occurrence: GB)
  Receive Date: 20201221
  Receipt Date: 20201221
  Transmission Date: 20210114
  Serious: Yes (Other)
  Sender: FDA-Public Use
  Company Number: GB-ACCORD-211645

PATIENT
  Age: 25 Year
  Sex: Female
  Weight: 92 kg

DRUGS (1)
  1. SERTRALINE [Suspect]
     Active Substance: SERTRALINE HYDROCHLORIDE
     Indication: ANXIETY
     Dosage: 50MG INCREASED TO 100MG
     Route: 048

REACTIONS (2)
  - Body temperature increased [Not Recovered/Not Resolved]
  - Night sweats [Not Recovered/Not Resolved]
